FAERS Safety Report 25908425 (Version 1)
Quarter: 2025Q4

REPORT INFORMATION
  Report Type: Spontaneous
  Country: GB (occurrence: GB)
  Receive Date: 20251010
  Receipt Date: 20251010
  Transmission Date: 20260119
  Serious: Yes (Life-Threatening, Hospitalization)
  Sender: NOVARTIS
  Company Number: GB-002147023-NVSC2025GB155258

PATIENT
  Age: 15 Year
  Sex: Male

DRUGS (3)
  1. EVEROLIMUS [Suspect]
     Active Substance: EVEROLIMUS
     Indication: Rhabdomyoma
     Dosage: INITIAL
     Route: 065
     Dates: start: 2014
  2. EVEROLIMUS [Suspect]
     Active Substance: EVEROLIMUS
     Dosage: RESUMED AGAIN
     Route: 065
  3. OCTREOTIDE [Concomitant]
     Active Substance: OCTREOTIDE
     Indication: Gastrointestinal haemorrhage
     Dosage: 5 ?G/KG (INFUSION)
     Route: 050

REACTIONS (5)
  - Gastric antral vascular ectasia [Recovered/Resolved]
  - Gastrointestinal haemorrhage [Recovered/Resolved]
  - Haemoglobin decreased [Unknown]
  - Respiratory disorder [Unknown]
  - Neurological decompensation [Unknown]
